FAERS Safety Report 7405147-3 (Version None)
Quarter: 2011Q2

REPORT INFORMATION
  Report Type: 
  Country: None (occurrence: None)
  Receive Date: 20110411
  Receipt Date: 20110331
  Transmission Date: 20111010
  Serious: Yes (Other)
  Sender: FDA-Public Use
  Company Number: CA-NOVOPROD-325990

PATIENT
  Age: 67 Year
  Sex: Female

DRUGS (4)
  1. VAGIFEM [Suspect]
     Indication: PRODUCT USED FOR UNKNOWN INDICATION
     Dosage: (1 TABLET FOR 4 DAYS)
     Route: 067
  2. COVERSYL                           /00790702/ [Concomitant]
     Dosage: UNK
     Route: 048
  3. LIPITOR [Concomitant]
     Dosage: UNK
     Route: 048
  4. PLAVIX [Concomitant]
     Dosage: UNK
     Route: 048

REACTIONS (2)
  - BLOOD PRESSURE INCREASED [None]
  - ABDOMINAL DISTENSION [None]
